FAERS Safety Report 6675012-8 (Version None)
Quarter: 2010Q2

REPORT INFORMATION
  Report Type: 
  Country: None (occurrence: None)
  Receive Date: 20100409
  Receipt Date: 20100326
  Transmission Date: 20101027
  Serious: Yes (Hospitalization)
  Sender: FDA-Public Use
  Company Number: SE-MERCK-1003SWE00061

PATIENT
  Age: 51 Year
  Sex: Female

DRUGS (4)
  1. ZOCOR [Suspect]
     Route: 048
     Dates: start: 19891001, end: 19900101
  2. ZOCOR [Suspect]
     Route: 048
     Dates: start: 19900101, end: 19910601
  3. QUESTRAN [Concomitant]
     Route: 065
  4. FENANTOIN [Concomitant]
     Route: 065

REACTIONS (3)
  - CHEST PAIN [None]
  - FATIGUE [None]
  - MYALGIA [None]
